FAERS Safety Report 9520252 (Version 1)
Quarter: 2013Q3

REPORT INFORMATION
  Report Type: Spontaneous
  Country: US (occurrence: US)
  Receive Date: 20130912
  Receipt Date: 20130912
  Transmission Date: 20140515
  Serious: Yes (Other)
  Sender: FDA-Public Use
  Company Number: US-BAXTER-2013BAX035450

PATIENT
  Sex: Female

DRUGS (2)
  1. GAMMAGARD LIQUID [Suspect]
     Indication: INFECTION
     Route: 058
     Dates: start: 201212
  2. GAMMAGARD LIQUID [Suspect]
     Route: 058
     Dates: start: 20130902, end: 20130902

REACTIONS (2)
  - Drug ineffective [Unknown]
  - Hypertension [Unknown]
